FAERS Safety Report 6594674-7 (Version None)
Quarter: 2010Q1

REPORT INFORMATION
  Report Type: 
  Country: None (occurrence: None)
  Receive Date: 20100222
  Receipt Date: 20100122
  Transmission Date: 20100710
  Serious: No
  Sender: FDA-Public Use
  Company Number: US-BAYER-200938916NA

PATIENT
  Age: 57 Year
  Sex: Female

DRUGS (3)
  1. ULTRAVIST 300 [Suspect]
     Indication: COMPUTERISED TOMOGRAM
     Dosage: TOTAL DAILY DOSE: 60 ML  UNIT DOSE: 500 ML
     Route: 042
  2. PREDNISONE [Concomitant]
     Indication: PREMEDICATION
     Dosage: 50 MG 24, 12, AND 2 HOURS PRIOR TO PROCEDURE
  3. BENADRYL [Concomitant]
     Indication: PREMEDICATION
     Dosage: AS USED: 25 MG

REACTIONS (1)
  - URTICARIA [None]
